FAERS Safety Report 17945814 (Version 3)
Quarter: 2020Q3

REPORT INFORMATION
  Report Type: Spontaneous
  Country: US (occurrence: US)
  Receive Date: 20200625
  Receipt Date: 20200909
  Transmission Date: 20201103
  Serious: No
  Sender: FDA-Public Use
  Company Number: US-PFIZER INC-2020245402

PATIENT
  Age: 87 Year
  Sex: Female
  Weight: 69.4 kg

DRUGS (1)
  1. CELEBREX [Suspect]
     Active Substance: CELECOXIB
     Dosage: 20 MG, 2X/DAY
     Route: 048

REACTIONS (3)
  - Blood pressure decreased [Unknown]
  - Body height decreased [Unknown]
  - Product prescribing error [Unknown]
